FAERS Safety Report 8063623-7 (Version None)
Quarter: 2011Q4

REPORT INFORMATION
  Report Type: 
  Country: None (occurrence: None)
  Receive Date: 20111220
  Receipt Date: 20110503
  Transmission Date: 20120403
  Serious: Yes (Other)
  Sender: FDA-Public Use
  Company Number: 2011001618

PATIENT
  Age: 70 Year
  Sex: Female

DRUGS (1)
  1. FENTANYL [Suspect]
     Dosage: 2400 MCG (600 MCG, 4 IN 1 D), BU
     Route: 002

REACTIONS (2)
  - DENTAL CARIES [None]
  - TOOTH INJURY [None]
